FAERS Safety Report 8341985-0 (Version None)
Quarter: 2012Q2

REPORT INFORMATION
  Report Type: 
  Country: None (occurrence: None)
  Receive Date: 20120507
  Receipt Date: 20120430
  Transmission Date: 20120825
  Serious: No
  Sender: FDA-Public Use
  Company Number: US-BAYER-2012-042252

PATIENT

DRUGS (2)
  1. NAPROXEN SODIUM [Suspect]
     Indication: MUSCULOSKELETAL PAIN
  2. NAPROXEN SODIUM [Suspect]
     Indication: NECK PAIN
     Dosage: 1 DF, UNK
     Route: 048

REACTIONS (1)
  - HYPERSENSITIVITY [None]
